FAERS Safety Report 6359184-0 (Version None)
Quarter: 2009Q3

REPORT INFORMATION
  Report Type: 
  Country: None (occurrence: None)
  Receive Date: 20090917
  Receipt Date: 20090907
  Transmission Date: 20100115
  Serious: Yes (Other)
  Sender: FDA-Public Use
  Company Number: IT-BAXTER-2009BH013660

PATIENT
  Age: 17 Year
  Sex: Female

DRUGS (11)
  1. GAMMAGARD LIQUID [Suspect]
     Indication: BONE MARROW TRANSPLANT
     Route: 042
     Dates: start: 20090901, end: 20090901
  2. RANITIDINE [Concomitant]
  3. METHYLPREDNISOLONE [Concomitant]
  4. FUROSEMIDE [Concomitant]
  5. TACROLIMUS [Concomitant]
  6. MYCOPHENOLATE MOFETIL [Concomitant]
  7. ACYCLOVIR [Concomitant]
  8. CIPROFLAXACIN [Concomitant]
  9. SULFAMETHOXAZOLE AND TRIMETHOPRIM [Concomitant]
  10. FLUCONAZOLE [Concomitant]
  11. HYDROXYZINE [Concomitant]

REACTIONS (1)
  - ACUTE RESPIRATORY FAILURE [None]
